FAERS Safety Report 5521370-7 (Version None)
Quarter: 2007Q4

REPORT INFORMATION
  Report Type: 
  Country: None (occurrence: None)
  Receive Date: 20071119
  Receipt Date: 20071113
  Transmission Date: 20080405
  Serious: Yes (Hospitalization)
  Sender: FDA-Public Use
  Company Number: US-BOEHRINGER INGELHEIM PHARMACEUTICALS, INC.-2007-BP-24524BP

PATIENT
  Sex: Female
  Weight: 3 kg

DRUGS (3)
  1. MIRAPEX [Suspect]
     Indication: PARKINSON'S DISEASE
     Route: 015
     Dates: start: 20060101
  2. SYNTHROID [Suspect]
     Route: 015
  3. SELEGILINE HCL [Suspect]
     Route: 015

REACTIONS (2)
  - POOR SUCKING REFLEX [None]
  - PREMATURE BABY [None]
